FAERS Safety Report 17498110 (Version 7)
Quarter: 2020Q2

REPORT INFORMATION
  Report Type: Spontaneous
  Country: CA (occurrence: CA)
  Receive Date: 20200304
  Receipt Date: 20200518
  Transmission Date: 20200713
  Serious: Yes (Hospitalization, Disabling, Other)
  Sender: FDA-Public Use
  Company Number: CA-AKCEA THERAPEUTICS-2020IS001095

PATIENT

DRUGS (6)
  1. ASA [Concomitant]
     Active Substance: ASPIRIN
     Indication: PRODUCT USED FOR UNKNOWN INDICATION
     Route: 065
  2. MELATONIN [Concomitant]
     Active Substance: MELATONIN
     Indication: PRODUCT USED FOR UNKNOWN INDICATION
     Dosage: UNK UNK, QD
     Route: 048
  3. VITAMIN A                          /00056001/ [Concomitant]
     Active Substance: RETINOL
     Indication: PRODUCT USED FOR UNKNOWN INDICATION
     Dosage: 10000 IU, UNK
     Route: 048
     Dates: start: 20190930
  4. TEGSEDI [Suspect]
     Active Substance: INOTERSEN SODIUM
     Indication: HEREDITARY NEUROPATHIC AMYLOIDOSIS
     Dosage: 284 MG, QW
     Route: 058
     Dates: start: 20190930, end: 202003
  5. LYRICA [Concomitant]
     Active Substance: PREGABALIN
     Indication: PRODUCT USED FOR UNKNOWN INDICATION
     Dosage: 40 MG, QD
     Route: 048
  6. VITAMIN B12 [Concomitant]
     Active Substance: CYANOCOBALAMIN
     Indication: PRODUCT USED FOR UNKNOWN INDICATION
     Dosage: UNK
     Route: 048

REACTIONS (46)
  - Fatigue [Recovering/Resolving]
  - Dehydration [Not Recovered/Not Resolved]
  - Gastrointestinal carcinoma [Unknown]
  - Bladder hypertrophy [Not Recovered/Not Resolved]
  - Dysphagia [Not Recovered/Not Resolved]
  - Dyspnoea [Not Recovered/Not Resolved]
  - Lip dry [Not Recovered/Not Resolved]
  - Red cell distribution width increased [Not Recovered/Not Resolved]
  - Gastrointestinal ulcer haemorrhage [Recovered/Resolved]
  - Polychromasia [Not Recovered/Not Resolved]
  - Anaemia macrocytic [Not Recovered/Not Resolved]
  - Platelet count increased [Recovered/Resolved]
  - Red blood cell count decreased [Not Recovered/Not Resolved]
  - Hypotension [Recovering/Resolving]
  - Hepatic cyst [Not Recovered/Not Resolved]
  - Bedridden [Unknown]
  - Lip blister [Not Recovered/Not Resolved]
  - Myelocyte count increased [Not Recovered/Not Resolved]
  - Blood bilirubin abnormal [Not Recovered/Not Resolved]
  - Urine protein/creatinine ratio abnormal [Not Recovered/Not Resolved]
  - Lethargy [Not Recovered/Not Resolved]
  - Creatinine urine decreased [Not Recovered/Not Resolved]
  - Decreased appetite [Not Recovered/Not Resolved]
  - Extremity contracture [Not Recovered/Not Resolved]
  - Decubitus ulcer [Not Recovered/Not Resolved]
  - Hypersomnia [Unknown]
  - Oropharyngeal pain [Not Recovered/Not Resolved]
  - Neutrophil count increased [Recovered/Resolved]
  - Metamyelocyte count increased [Not Recovered/Not Resolved]
  - Albumin urine present [Not Recovered/Not Resolved]
  - Protein urine present [Not Recovered/Not Resolved]
  - Renal impairment [Unknown]
  - Hypophagia [Unknown]
  - Duodenal ulcer [Recovered/Resolved]
  - Haemoglobin decreased [Not Recovered/Not Resolved]
  - White blood cell count increased [Recovered/Resolved]
  - Lymphocyte count decreased [Recovered/Resolved]
  - Mean cell volume increased [Recovered/Resolved]
  - Neutrophil hypersegmented morphology present [Not Recovered/Not Resolved]
  - Urine albumin/creatinine ratio increased [Not Recovered/Not Resolved]
  - Renal failure [Unknown]
  - General physical health deterioration [Not Recovered/Not Resolved]
  - Haematocrit decreased [Not Recovered/Not Resolved]
  - Weight decreased [Not Recovered/Not Resolved]
  - Red blood cell spherocytes present [Not Recovered/Not Resolved]
  - Band neutrophil count increased [Not Recovered/Not Resolved]

NARRATIVE: CASE EVENT DATE: 202002
